FAERS Safety Report 8668571 (Version 4)
Quarter: 2012Q4

REPORT INFORMATION
  Report Type: 
  Country: US (occurrence: US)
  Receive Date: 20120717
  Receipt Date: 20121001
  Transmission Date: 20130627
  Serious: Yes (Hospitalization, Other)
  Sender: FDA-Public Use
  Company Number: US-009507513-2012SP027418

PATIENT
  Age: 32 None

DRUGS (1)
  1. NUVARING [Suspect]
     Indication: CONTRACEPTION
     Dosage: UNK
     Dates: start: 20030318, end: 20100528

REACTIONS (24)
  - Cholelithiasis [Unknown]
  - Deep vein thrombosis [Unknown]
  - Proteinuria [Unknown]
  - Hypertension [Unknown]
  - Cholelithiasis [Not Recovered/Not Resolved]
  - Eye pain [Unknown]
  - Headache [Unknown]
  - Oesophagitis [Unknown]
  - Helicobacter infection [Unknown]
  - Cholecystitis acute [Unknown]
  - Hepatic steatosis [Unknown]
  - Migraine [Unknown]
  - Gastrointestinal disorder [Unknown]
  - Exposure during pregnancy [Unknown]
  - Nephrotic syndrome [Unknown]
  - Unintended pregnancy [Unknown]
  - Abdominal pain [Not Recovered/Not Resolved]
  - Toothache [Unknown]
  - Dental caries [Unknown]
  - Liver function test abnormal [Unknown]
  - Obesity [Not Recovered/Not Resolved]
  - Dyspnoea [Not Recovered/Not Resolved]
  - Chest pain [Unknown]
  - Cholecystectomy [Unknown]
